FAERS Safety Report 8328462-8 (Version None)
Quarter: 2012Q2

REPORT INFORMATION
  Report Type: 
  Country: None (occurrence: None)
  Receive Date: 20120502
  Receipt Date: 20120502
  Transmission Date: 20120825
  Serious: No
  Sender: FDA-Public Use
  Company Number: None

PATIENT
  Age: 33 Year
  Sex: Female
  Weight: 102.05 kg

DRUGS (1)
  1. AVONEX [Suspect]
     Indication: MULTIPLE SCLEROSIS
     Dosage: |DOSAGETEXT: 1 SHOT||FREQ: WEEKLY||ROUTE: INTRAMUSCULAR|
     Route: 030

REACTIONS (9)
  - WEIGHT INCREASED [None]
  - HYPOTHYROIDISM [None]
  - HEPATIC STEATOSIS [None]
  - PLATELET COUNT DECREASED [None]
  - SPLENOMEGALY [None]
  - BLOOD BILIRUBIN INCREASED [None]
  - LIVER DISORDER [None]
  - HEPATOMEGALY [None]
  - WHITE BLOOD CELL COUNT DECREASED [None]
